FAERS Safety Report 12775424 (Version 1)
Quarter: 2016Q3

REPORT INFORMATION
  Report Type: Spontaneous
  Country: GB (occurrence: GB)
  Receive Date: 20160923
  Receipt Date: 20160923
  Transmission Date: 20161109
  Serious: Yes (Other)
  Sender: FDA-Public Use
  Company Number: GB-PFIZER INC-18199

PATIENT
  Age: 52 Year
  Sex: Female

DRUGS (12)
  1. NEOMYCIN [Suspect]
     Active Substance: NEOMYCIN
     Indication: POSTOPERATIVE CARE
     Dosage: FREQ: UNK
     Route: 047
     Dates: start: 20070515, end: 20070515
  2. VANCOMYCIN HCL [Suspect]
     Active Substance: VANCOMYCIN HYDROCHLORIDE
     Indication: EYE IRRIGATION
     Dosage: 10 MG, FREQ: FREQ UNK
     Dates: start: 20070515, end: 20070515
  3. POVIDONE-IODINE. [Suspect]
     Active Substance: POVIDONE-IODINE
     Indication: CATARACT OPERATION
     Dosage: FREQ: UNK
     Route: 047
     Dates: start: 20070515, end: 20070515
  4. HYALURONATE SODIUM [Suspect]
     Active Substance: HYALURONATE SODIUM
     Indication: CATARACT OPERATION
     Dosage: FREQ: UNK
     Route: 047
     Dates: start: 20070515, end: 20070515
  5. CYCLOPENTOLATE HYDROCHLORIDE. [Suspect]
     Active Substance: CYCLOPENTOLATE HYDROCHLORIDE
     Indication: CATARACT OPERATION
     Dosage: STRENGTH 1%, FREQ: UNK
     Route: 047
     Dates: start: 20070515, end: 20070515
  6. ADRENALINE /00003901/ [Suspect]
     Active Substance: EPINEPHRINE
     Indication: EYE IRRIGATION
     Dosage: 0.3 ML, FREQ: FREQ UNK
     Route: 047
     Dates: start: 20070515, end: 20070515
  7. BALANCED SALT SOLUTION [Suspect]
     Active Substance: CALCIUM CHLORIDE\MAGNESIUM CHLORIDE\POTASSIUM CHLORIDE\SODIUM ACETATE\SODIUM CHLORIDE\SODIUM CITRATE
  8. OCUFEN [Suspect]
     Active Substance: FLURBIPROFEN SODIUM
     Indication: PREOPERATIVE CARE
     Dosage: 1 DF, STRENGTH 0.03%, FREQ: FREQ UNK
     Route: 047
     Dates: start: 20070515, end: 20070515
  9. CHLORAMPHENICOL [Suspect]
     Active Substance: CHLORAMPHENICOL
     Indication: CATARACT OPERATION
     Dosage: STRENGTH 0.5%, FREQ: UNK
     Route: 047
     Dates: start: 20070515, end: 20070515
  10. LIDOCAINE HCL [Suspect]
     Active Substance: LIDOCAINE HYDROCHLORIDE
     Indication: CATARACT OPERATION
     Dosage: 2 ML, STRENGTH 1%, FREQ: FREQ UNK
     Route: 047
     Dates: start: 20070515, end: 20070515
  11. BETAMETHASONE. [Suspect]
     Active Substance: BETAMETHASONE
     Indication: POSTOPERATIVE CARE
     Dosage: FREQ: UNK
     Route: 047
     Dates: start: 20070515, end: 20070515
  12. PHENYLEPHRINE HYDROCHLORIDE. [Suspect]
     Active Substance: PHENYLEPHRINE HYDROCHLORIDE
     Indication: CATARACT OPERATION
     Dosage: FREQ: UNK
     Dates: start: 20070515, end: 20070515

REACTIONS (1)
  - Toxic anterior segment syndrome [Recovering/Resolving]

NARRATIVE: CASE EVENT DATE: 20070605
